FAERS Safety Report 15362199 (Version 3)
Quarter: 2018Q4

REPORT INFORMATION
  Report Type: Report from Study
  Country: MY (occurrence: MY)
  Receive Date: 20180907
  Receipt Date: 20181018
  Transmission Date: 20190204
  Serious: Yes (Hospitalization, Other)
  Sender: FDA-Public Use
  Company Number: PHHY2018MY090454

PATIENT
  Age: 52 Year
  Sex: Female

DRUGS (2)
  1. TASIGNA [Suspect]
     Active Substance: NILOTINIB
     Indication: CHRONIC MYELOID LEUKAEMIA
     Dosage: 400 MG, BID
     Route: 048
     Dates: start: 20180516
  2. TASIGNA [Interacting]
     Active Substance: NILOTINIB
     Dosage: UNK
     Route: 065
     Dates: start: 20180611

REACTIONS (13)
  - Candida infection [Recovering/Resolving]
  - Platelet count decreased [Unknown]
  - Pulmonary mass [Unknown]
  - Pyrexia [Recovering/Resolving]
  - Haemoglobin decreased [Unknown]
  - Neutropenia [Unknown]
  - Blood sodium decreased [Unknown]
  - Tuberculosis [Unknown]
  - Hepatitis B [Unknown]
  - Asthma [Unknown]
  - Chronic granulomatous disease [Unknown]
  - Emphysema [Unknown]
  - White blood cell count decreased [Unknown]

NARRATIVE: CASE EVENT DATE: 20180612
